FAERS Safety Report 7931008-7 (Version None)
Quarter: 2011Q4

REPORT INFORMATION
  Report Type: 
  Country: None (occurrence: None)
  Receive Date: 20111121
  Receipt Date: 20111110
  Transmission Date: 20120403
  Serious: Yes (Other)
  Sender: FDA-Public Use
  Company Number: US-BAXTER-2011BH029496

PATIENT
  Age: 50 Year
  Sex: Female
  Weight: 66 kg

DRUGS (3)
  1. MULTI-VITAMINS [Concomitant]
     Indication: MEDICAL DIET
     Route: 048
  2. ZITHROMAX [Concomitant]
     Indication: SINUSITIS
     Route: 048
     Dates: start: 20110912, end: 20110916
  3. GAMMAGARD S/D [Suspect]
     Indication: SELECTIVE IGG SUBCLASS DEFICIENCY
     Route: 065
     Dates: start: 20101220

REACTIONS (7)
  - MUSCULOSKELETAL STIFFNESS [None]
  - PAIN IN EXTREMITY [None]
  - BONE PAIN [None]
  - MALAISE [None]
  - MENINGITIS ASEPTIC [None]
  - CHILLS [None]
  - PAIN [None]
